FAERS Safety Report 5711876-X (Version None)
Quarter: 2008Q2

REPORT INFORMATION
  Report Type: 
  Country: None (occurrence: None)
  Receive Date: 20080421
  Receipt Date: 20080414
  Transmission Date: 20081010
  Serious: Yes (Hospitalization)
  Sender: FDA-Public Use
  Company Number: US-BOEHRINGER INGELHEIM GMBH, GERMANY-2008-BP-04983BP

PATIENT
  Sex: Male

DRUGS (7)
  1. AGGRENOX [Suspect]
     Indication: TRANSIENT ISCHAEMIC ATTACK
     Route: 048
     Dates: start: 20080317, end: 20080318
  2. AGGRENOX [Suspect]
     Indication: STENT PLACEMENT
  3. PLAVIX [Concomitant]
     Indication: CARDIAC DISORDER
  4. ACIPHEX [Concomitant]
  5. INDOMETHACIN [Concomitant]
  6. DIOVAN [Concomitant]
  7. ASPIRIN [Concomitant]

REACTIONS (3)
  - DIARRHOEA [None]
  - DIZZINESS [None]
  - HEADACHE [None]
